FAERS Safety Report 16796483 (Version 1)
Quarter: 2019Q3

REPORT INFORMATION
  Report Type: Spontaneous
  Country: US (occurrence: US)
  Receive Date: 20190911
  Receipt Date: 20190911
  Transmission Date: 20191005
  Serious: Yes (Hospitalization)
  Sender: FDA-Public Use
  Company Number: US-BAUSCH-BL-2019-025802

PATIENT
  Age: 27 Year
  Sex: Female

DRUGS (1)
  1. APRISO [Suspect]
     Active Substance: MESALAMINE
     Indication: COLITIS ULCERATIVE
     Dosage: STARTED: ABOUT 2 YEARS AGO
     Route: 048
     Dates: end: 201903

REACTIONS (4)
  - Therapy cessation [Unknown]
  - Hospitalisation [Not Recovered/Not Resolved]
  - Pain [Not Recovered/Not Resolved]
  - Insurance issue [Unknown]

NARRATIVE: CASE EVENT DATE: 201903
